FAERS Safety Report 10962491 (Version 2)
Quarter: 2015Q1

REPORT INFORMATION
  Report Type: Spontaneous
  Country: US (occurrence: US)
  Receive Date: 20150327
  Receipt Date: 20150331
  Transmission Date: 20150721
  Serious: Yes (Other)
  Sender: FDA-Public Use
  Company Number: US-GLAXOSMITHKLINE-US2015GSK040573

PATIENT

DRUGS (3)
  1. WELLBUTRIN XL [Suspect]
     Active Substance: BUPROPION HYDROCHLORIDE
     Indication: PRODUCT USED FOR UNKNOWN INDICATION
     Dosage: UNK
     Route: 048
     Dates: start: 20060508
  2. AMBIEN CR [Concomitant]
     Active Substance: ZOLPIDEM TARTRATE
     Indication: PRODUCT USED FOR UNKNOWN INDICATION
     Dosage: UNK
     Route: 065
  3. PROPRANOLOL [Concomitant]
     Active Substance: PROPRANOLOL\PROPRANOLOL HYDROCHLORIDE
     Indication: PRODUCT USED FOR UNKNOWN INDICATION
     Dosage: UNK
     Route: 065

REACTIONS (20)
  - Suicidal ideation [Unknown]
  - Serotonin syndrome [Unknown]
  - Post-traumatic stress disorder [Unknown]
  - Drug interaction [Unknown]
  - Visual impairment [Unknown]
  - Abnormal behaviour [Unknown]
  - Hallucination [Unknown]
  - Panic attack [Unknown]
  - Somnambulism [Unknown]
  - Insomnia [Unknown]
  - Psychotic disorder [Unknown]
  - Amnesia [Unknown]
  - Mood swings [Unknown]
  - Depressed level of consciousness [Unknown]
  - Cerebrovascular disorder [Unknown]
  - Toxicity to various agents [Unknown]
  - Syncope [Unknown]
  - Vertigo [Unknown]
  - Nightmare [Unknown]
  - Depression [Unknown]
